FAERS Safety Report 25390220 (Version 1)
Quarter: 2025Q2

REPORT INFORMATION
  Report Type: Spontaneous
  Country: GB (occurrence: GB)
  Receive Date: 20250603
  Receipt Date: 20250603
  Transmission Date: 20250716
  Serious: Yes (Life-Threatening, Hospitalization, Disabling, Other)
  Sender: MYLAN
  Company Number: None

PATIENT
  Age: 27 Year
  Sex: Male
  Weight: 70 kg

DRUGS (4)
  1. FINASTERIDE [Suspect]
     Active Substance: FINASTERIDE
     Indication: Product used for unknown indication
  2. FINASTERIDE [Suspect]
     Active Substance: FINASTERIDE
     Route: 065
  3. FINASTERIDE [Suspect]
     Active Substance: FINASTERIDE
     Route: 065
  4. FINASTERIDE [Suspect]
     Active Substance: FINASTERIDE

REACTIONS (5)
  - Sexual dysfunction [Not Recovered/Not Resolved]
  - Depression [Not Recovered/Not Resolved]
  - Erectile dysfunction [Not Recovered/Not Resolved]
  - Penis disorder [Not Recovered/Not Resolved]
  - Body dysmorphic disorder [Not Recovered/Not Resolved]
